FAERS Safety Report 15615829 (Version 1)
Quarter: 2018Q4

REPORT INFORMATION
  Report Type: Spontaneous
  Country: IS (occurrence: IS)
  Receive Date: 20181114
  Receipt Date: 20181114
  Transmission Date: 20190205
  Serious: Yes (Other)
  Sender: FDA-Public Use
  Company Number: IS-TEVA-2018-IS-973819

PATIENT
  Age: 40 Year
  Sex: Male

DRUGS (1)
  1. VANCOMYCIN ACTAVIS [Suspect]
     Active Substance: VANCOMYCIN
     Route: 042

REACTIONS (1)
  - Drug reaction with eosinophilia and systemic symptoms [Unknown]
